FAERS Safety Report 9189470 (Version 1)
Quarter: 2013Q1

REPORT INFORMATION
  Report Type: Spontaneous
  Country: US (occurrence: None)
  Receive Date: 20130326
  Receipt Date: 20130326
  Transmission Date: 20140127
  Serious: No
  Sender: FDA-Public Use
  Company Number: None

PATIENT
  Age: 83 Year
  Sex: Male
  Weight: 117.94 kg

DRUGS (1)
  1. METHYLPREDNISOLONE ACETATE [Suspect]
     Indication: LUMBAR SPINAL STENOSIS
     Dosage: 80MG  PRN  EPIDURAL
     Route: 008
     Dates: start: 20120723, end: 20120723

REACTIONS (2)
  - Meningitis fungal [None]
  - Renal impairment [None]
